FAERS Safety Report 8948139 (Version 1)
Quarter: 2012Q4

REPORT INFORMATION
  Report Type: Spontaneous
  Country: TR (occurrence: None)
  Receive Date: 20121126
  Receipt Date: 20121126
  Transmission Date: 20130627
  Serious: Yes (Disabling)
  Sender: FDA-Public Use
  Company Number: 1493239

PATIENT
  Age: 2 Year
  Sex: Male

DRUGS (4)
  1. CYTARABINE [Suspect]
     Indication: ACUTE MYELOBLASTIC LEUKEMIA
     Dosage: 3 g/ m^2, UNKNOWN, Intravenous (not otherwise specified)
  2. ETOPOSIDE [Suspect]
     Indication: ACUTE MYELOBLASTIC LEUKEMIA
     Dosage: 125 mg/ m^2 , UNKNOWN , UNkNOWN
  3. CEFEPIME [Suspect]
     Indication: FEBRILE NEUTROPENIA
     Dosage: 150 mg/kg, UNKNOWN, Intravenous (not otherwise specified)
     Route: 042
  4. (AMIKACIN) [Concomitant]

REACTIONS (8)
  - Drug interaction [None]
  - Blood pressure decreased [None]
  - Heart rate increased [None]
  - Agitation [None]
  - Hallucination [None]
  - Haemoglobin decreased [None]
  - Status epilepticus [None]
  - Neurotoxicity [None]
